FAERS Safety Report 8560438 (Version 2)
Quarter: 2018Q4

REPORT INFORMATION
  Report Type: Report from Study
  Country: JP (occurrence: JP)
  Receive Date: 20120514
  Receipt Date: 20181026
  Transmission Date: 20190205
  Serious: Yes (Death, Life-Threatening, Hospitalization)
  Sender: FDA-Public Use
  Company Number: PHHO2006JP13516

PATIENT
  Age: 64 Year
  Sex: Female
  Weight: 36 kg

DRUGS (4)
  1. MEROPEN [Concomitant]
     Active Substance: MEROPENEM
  2. TASIGNA [Suspect]
     Active Substance: NILOTINIB
     Indication: BLAST CRISIS IN MYELOGENOUS LEUKAEMIA
     Dosage: 800 MG, QD
     Route: 048
     Dates: start: 20060802, end: 20060814
  3. TASIGNA [Suspect]
     Active Substance: NILOTINIB
     Indication: CHRONIC MYELOID LEUKAEMIA
     Dosage: 400 MG, QD
     Route: 048
     Dates: start: 20060801, end: 20060801
  4. TASIGNA [Suspect]
     Active Substance: NILOTINIB
     Dosage: 400 MG, BID
     Route: 048
     Dates: start: 20060802, end: 20060814

REACTIONS (24)
  - Cardiac disorder [Unknown]
  - Atrial fibrillation [Fatal]
  - Bradycardia [Fatal]
  - Tachycardia [Not Recovered/Not Resolved]
  - Anaemia [Fatal]
  - Deep vein thrombosis [Fatal]
  - Thrombophlebitis [Recovering/Resolving]
  - Disseminated intravascular coagulation [Unknown]
  - Electrocardiogram QT prolonged [Recovering/Resolving]
  - Cardiac tamponade [Fatal]
  - Cardiac failure [Fatal]
  - Pericardial effusion [Fatal]
  - Hypotension [Fatal]
  - Hepatomegaly [Unknown]
  - Pleurisy [Not Recovered/Not Resolved]
  - Blood lactate dehydrogenase increased [Unknown]
  - Sinus node dysfunction [Not Recovered/Not Resolved]
  - Back pain [Not Recovered/Not Resolved]
  - Pericardial haemorrhage [Fatal]
  - Sinoatrial block [Fatal]
  - Pleural effusion [Not Recovered/Not Resolved]
  - Paracentesis [Not Recovered/Not Resolved]
  - Pneumonia [Not Recovered/Not Resolved]
  - Hyperglycaemia [Unknown]

NARRATIVE: CASE EVENT DATE: 20060801
